FAERS Safety Report 9252305 (Version 5)
Quarter: 2014Q3

REPORT INFORMATION
  Report Type: Spontaneous
  Country: US (occurrence: US)
  Receive Date: 20130424
  Receipt Date: 20140822
  Transmission Date: 20150326
  Serious: Yes (Hospitalization, Other)
  Sender: FDA-Public Use
  Company Number: US-ASTRAZENECA-2006UW20829

PATIENT
  Age: 71 Year
  Sex: Male
  Weight: 86.2 kg

DRUGS (29)
  1. NEXIUM [Suspect]
     Active Substance: ESOMEPRAZOLE MAGNESIUM
     Indication: GASTROOESOPHAGEAL REFLUX DISEASE
     Dosage: TWO TIMES A DAY
     Route: 048
     Dates: start: 2004, end: 2006
  2. SETRALINE [Concomitant]
  3. TUMS [Concomitant]
     Active Substance: CALCIUM CARBONATE
  4. BENICAR HCT [Concomitant]
     Active Substance: HYDROCHLOROTHIAZIDE\OLMESARTAN MEDOXOMIL
     Dosage: 40/25 MG ORALLY DAILY
     Route: 048
     Dates: start: 20050103
  5. CEPHALEXIN. [Concomitant]
     Active Substance: CEPHALEXIN
  6. NEXIUM [Suspect]
     Active Substance: ESOMEPRAZOLE MAGNESIUM
     Indication: DYSPEPSIA
     Dosage: TWICE A DAY
     Route: 048
  7. DICLOFENAC [Concomitant]
     Active Substance: DICLOFENAC
     Route: 048
     Dates: start: 20060208
  8. PRILOSEC [Concomitant]
     Active Substance: OMEPRAZOLE MAGNESIUM
  9. NEXIUM [Suspect]
     Active Substance: ESOMEPRAZOLE MAGNESIUM
     Indication: DYSPEPSIA
     Dosage: TWO TIMES A DAY
     Route: 048
     Dates: start: 2004, end: 2006
  10. NEXIUM [Suspect]
     Active Substance: ESOMEPRAZOLE MAGNESIUM
     Indication: GASTROOESOPHAGEAL REFLUX DISEASE
     Route: 048
     Dates: start: 20060124
  11. NEXIUM [Suspect]
     Active Substance: ESOMEPRAZOLE MAGNESIUM
     Indication: DYSPEPSIA
     Route: 048
     Dates: start: 20060124
  12. HYOSCYAMINE [Concomitant]
     Active Substance: HYOSCYAMINE
     Dosage: 0.125 MG
     Dates: start: 20041229
  13. NEXIUM [Suspect]
     Active Substance: ESOMEPRAZOLE MAGNESIUM
     Indication: HYPERCHLORHYDRIA
     Dosage: TWICE A DAY
     Route: 048
  14. NEXIUM [Suspect]
     Active Substance: ESOMEPRAZOLE MAGNESIUM
     Indication: HYPERCHLORHYDRIA
     Route: 048
     Dates: start: 20060124
  15. LORAZEPAM. [Concomitant]
     Active Substance: LORAZEPAM
  16. BABY ASPIRIN [Concomitant]
     Active Substance: ASPIRIN
  17. ALLEGRA [Concomitant]
     Active Substance: FEXOFENADINE HYDROCHLORIDE
     Dates: start: 2008
  18. CELEBREX [Concomitant]
     Active Substance: CELECOXIB
  19. NEXIUM [Suspect]
     Active Substance: ESOMEPRAZOLE MAGNESIUM
     Indication: GASTROOESOPHAGEAL REFLUX DISEASE
     Route: 048
     Dates: start: 20050106
  20. NEXIUM [Suspect]
     Active Substance: ESOMEPRAZOLE MAGNESIUM
     Indication: HYPERCHLORHYDRIA
     Route: 048
     Dates: start: 20050106
  21. TOPROL XL [Concomitant]
     Active Substance: METOPROLOL SUCCINATE
  22. VICODIN [Concomitant]
     Active Substance: ACETAMINOPHEN\HYDROCODONE BITARTRATE
  23. NEXIUM [Suspect]
     Active Substance: ESOMEPRAZOLE MAGNESIUM
     Indication: HYPERCHLORHYDRIA
     Dosage: TWO TIMES A DAY
     Route: 048
     Dates: start: 2004, end: 2006
  24. NEXIUM [Suspect]
     Active Substance: ESOMEPRAZOLE MAGNESIUM
     Indication: DYSPEPSIA
     Route: 048
     Dates: start: 20050106
  25. AMLODIPINE [Concomitant]
     Active Substance: AMLODIPINE BESYLATE
     Dates: start: 20080130
  26. ALKA SELTZER [Concomitant]
     Active Substance: ANHYDROUS CITRIC ACID\ASPIRIN\SODIUM BICARBONATE
  27. NEXIUM [Suspect]
     Active Substance: ESOMEPRAZOLE MAGNESIUM
     Indication: GASTROOESOPHAGEAL REFLUX DISEASE
     Dosage: TWICE A DAY
     Route: 048
  28. TOPROL XL [Concomitant]
     Active Substance: METOPROLOL SUCCINATE
     Route: 048
     Dates: start: 20070731
  29. HYDROCO [Concomitant]
     Indication: INTERVERTEBRAL DISC DEGENERATION

REACTIONS (16)
  - Anxiety disorder [Unknown]
  - Wrist fracture [Unknown]
  - Arthritis [Unknown]
  - Depression [Unknown]
  - Chest pain [Unknown]
  - Neoplasm malignant [Unknown]
  - Arthropathy [Unknown]
  - Nausea [Unknown]
  - Poor quality sleep [Unknown]
  - Disturbance in attention [Unknown]
  - Fall [Unknown]
  - Osteoporosis [Unknown]
  - Cataract [Unknown]
  - Loss of consciousness [Unknown]
  - Lymphoma [Unknown]
  - Bone disorder [Unknown]

NARRATIVE: CASE EVENT DATE: 20060730
